FAERS Safety Report 9033506 (Version 1)
Quarter: 2013Q1

REPORT INFORMATION
  Report Type: Spontaneous
  Country: US (occurrence: US)
  Receive Date: 20130128
  Receipt Date: 20130128
  Transmission Date: 20140127
  Serious: Yes (Hospitalization, Disabling, Other)
  Sender: FDA-Public Use
  Company Number: US-MERCK-1301USA011878

PATIENT
  Sex: Female

DRUGS (1)
  1. FOSAMAX [Suspect]
     Indication: BONE DENSITY DECREASED
     Dosage: UNK
     Route: 048
     Dates: start: 200007, end: 200901

REACTIONS (14)
  - Femur fracture [Recovered/Resolved]
  - Fall [Recovered/Resolved]
  - Internal fixation of fracture [Recovered/Resolved]
  - Osteoporosis [Unknown]
  - Bone neoplasm [Unknown]
  - Mass excision [Unknown]
  - Removal of internal fixation [Unknown]
  - Bone graft [Unknown]
  - Femoral neck fracture [Unknown]
  - Hip arthroplasty [Unknown]
  - Limb asymmetry [Unknown]
  - Limb deformity [Unknown]
  - Muscular weakness [Unknown]
  - Procedural complication [Unknown]
